FAERS Safety Report 7575293-2 (Version None)
Quarter: 2011Q2

REPORT INFORMATION
  Report Type: 
  Country: None (occurrence: None)
  Receive Date: 20110627
  Receipt Date: 20090529
  Transmission Date: 20111010
  Serious: Yes (Death, Other)
  Sender: FDA-Public Use
  Company Number: US-BAYER-200922025NA

PATIENT
  Age: 81 Year
  Sex: Female
  Weight: 85 kg

DRUGS (9)
  1. TEMAZEPAM [Concomitant]
     Dosage: 30 MG, HS
  2. DIPRIVAN [Concomitant]
     Dosage: UNK
     Dates: start: 20051110, end: 20051110
  3. HEPARIN [Concomitant]
  4. GLYBURIDE [Concomitant]
     Dosage: 6 MG, BID
  5. TRASYLOL [Suspect]
     Indication: CORONARY ARTERY BYPASS
     Dosage: 200 ML PUMP, UNK
     Route: 042
     Dates: start: 20051110, end: 20051110
  6. CALCIUM CARBONATE [Concomitant]
     Dosage: 600 MG, QD
  7. ZETIA [Concomitant]
     Dosage: 10 MG, QD
  8. ASPIRIN [Concomitant]
     Dosage: 325 MG, QD
  9. BENICAR HCT [Concomitant]
     Dosage: 40/20 MG QD

REACTIONS (9)
  - ANHEDONIA [None]
  - INJURY [None]
  - DEPRESSION [None]
  - UNEVALUABLE EVENT [None]
  - ANXIETY [None]
  - RENAL FAILURE [None]
  - FEAR [None]
  - PAIN [None]
  - DEATH [None]
